FAERS Safety Report 14253632 (Version 5)
Quarter: 2018Q2

REPORT INFORMATION
  Report Type: Report from Study
  Country: GB (occurrence: GB)
  Receive Date: 20171205
  Receipt Date: 20180425
  Transmission Date: 20180711
  Serious: Yes (Hospitalization)
  Sender: FDA-Public Use
  Company Number: GB-PFIZER INC-2017519290

PATIENT
  Age: 71 Year
  Sex: Female
  Weight: 52.9 kg

DRUGS (6)
  1. SALBUTAMOL [Concomitant]
     Active Substance: ALBUTEROL
     Indication: ASTHMA
     Dosage: 2 DF, AS NEEDED (2 PUFFS PRN)
     Route: 055
     Dates: start: 1980
  2. AMLODIPINE [Concomitant]
     Active Substance: AMLODIPINE BESYLATE
     Dosage: 10 MG, 1X/DAY
     Route: 048
     Dates: start: 20171127
  3. IPRATROPIUM BROMIDE. [Concomitant]
     Active Substance: IPRATROPIUM BROMIDE
     Indication: ASTHMA
     Dosage: 2 DF, 2X/DAY (20 MCG/ACTUATION; 2 PUFFS BD))
     Route: 055
     Dates: start: 1980
  4. AMLODIPINE [Concomitant]
     Active Substance: AMLODIPINE BESYLATE
     Indication: HYPERTENSION
     Dosage: 5 MG, 1X/DAY
     Route: 048
     Dates: start: 2013
  5. INLYTA [Suspect]
     Active Substance: AXITINIB
     Indication: RENAL CELL CARCINOMA
     Dosage: 5 MG, 2X/DAY (CONTINUOUS)
     Route: 048
     Dates: start: 20171102, end: 20171201
  6. AVELUMAB [Suspect]
     Active Substance: AVELUMAB
     Indication: RENAL CELL CARCINOMA
     Dosage: 546 MG, CYCLIC (EVERY 2 WEEKS)
     Route: 042
     Dates: start: 20171102, end: 20171201

REACTIONS (1)
  - Splinter haemorrhages [Recovered/Resolved]

NARRATIVE: CASE EVENT DATE: 20171201
